FAERS Safety Report 23056402 (Version 1)
Quarter: 2023Q4

REPORT INFORMATION
  Report Type: Spontaneous
  Country: IR (occurrence: IR)
  Receive Date: 20231011
  Receipt Date: 20231011
  Transmission Date: 20240110
  Serious: Yes (Hospitalization)
  Sender: FDA-Public Use
  Company Number: IR-BAUSCHBL-2023BNL009499

PATIENT
  Sex: Male

DRUGS (2)
  1. TETRACAINE HYDROCHLORIDE [Suspect]
     Active Substance: TETRACAINE HYDROCHLORIDE
     Indication: Eye pain
     Dosage: IN BOTH EYES AND PERIOCULAR AREA
     Route: 061
  2. DEVICE [Suspect]
     Active Substance: DEVICE
     Indication: Pain
     Route: 061

REACTIONS (3)
  - Drug eruption [Recovering/Resolving]
  - Drug abuse [Unknown]
  - Self-medication [Unknown]
